FAERS Safety Report 6316749-X (Version None)
Quarter: 2009Q3

REPORT INFORMATION
  Report Type: 
  Country: None (occurrence: None)
  Receive Date: 20090820
  Receipt Date: 20090819
  Transmission Date: 20100115
  Serious: Yes (Hospitalization)
  Sender: FDA-Public Use
  Company Number: JP-B.I. PHARMACEUTICALS,INC./RIDGEFIELD-2009-BP-09465NB

PATIENT
  Sex: Male
  Weight: 80 kg

DRUGS (2)
  1. MICARDIS [Suspect]
     Indication: HYPERTENSION
     Dosage: 40 MG
     Route: 048
     Dates: start: 20060703, end: 20081121
  2. ZYLORIC [Concomitant]
     Dosage: 100 MG
     Route: 048
     Dates: start: 20050701, end: 20081121

REACTIONS (1)
  - GASTRIC ULCER HAEMORRHAGE [None]
